FAERS Safety Report 6051723-2 (Version None)
Quarter: 2009Q1

REPORT INFORMATION
  Report Type: 
  Country: None (occurrence: None)
  Receive Date: 20090126
  Receipt Date: 20090113
  Transmission Date: 20090719
  Serious: Yes (Other)
  Sender: FDA-Public Use
  Company Number: US-ROCHE-602780

PATIENT
  Sex: Male
  Weight: 67.6 kg

DRUGS (6)
  1. XELODA [Suspect]
     Indication: COLON CANCER STAGE IV
     Dosage: RECEIVED 84 TABLETS DURING THE TWO WEEKS
     Route: 048
     Dates: start: 20080815, end: 20080908
  2. XELODA [Suspect]
     Dosage: RECEIVED 108 TABLETS, DURING THE CYCLE
     Route: 048
     Dates: start: 20080921, end: 20081004
  3. XELODA [Suspect]
     Dosage: RECEIVED 76 TABLETS
     Route: 048
     Dates: start: 20081013, end: 20081023
  4. COUMADIN [Concomitant]
  5. SYNTHROID [Concomitant]
  6. DIOVAN [Concomitant]

REACTIONS (5)
  - DIARRHOEA [None]
  - DRY SKIN [None]
  - HYPOAESTHESIA [None]
  - INFLAMMATION [None]
  - METASTASIS [None]
